APPROVED DRUG PRODUCT: IVERMECTIN
Active Ingredient: IVERMECTIN
Strength: 0.5%
Dosage Form/Route: LOTION;TOPICAL
Application: A212485 | Product #001
Applicant: TEVA PHARMACEUTICALS USA INC
Approved: Mar 21, 2022 | RLD: No | RS: No | Type: DISCN